FAERS Safety Report 21410269 (Version 4)
Quarter: 2023Q2

REPORT INFORMATION
  Report Type: Report from Study
  Country: US (occurrence: US)
  Receive Date: 20221005
  Receipt Date: 20230413
  Transmission Date: 20230722
  Serious: No
  Sender: FDA-Public Use
  Company Number: US-ABBVIE-22K-163-4496375-00

PATIENT
  Age: 68 Year
  Sex: Male

DRUGS (4)
  1. IMBRUVICA [Suspect]
     Active Substance: IBRUTINIB
     Indication: Chronic lymphocytic leukaemia
     Route: 048
     Dates: start: 20220709
  2. MODERNA COVID-19 VACCINE [Concomitant]
     Active Substance: ELASOMERAN
     Indication: COVID-19 immunisation
     Dosage: FIRST DOSE?ONE IN ONCE
     Route: 030
     Dates: start: 20210327, end: 20210327
  3. MODERNA COVID-19 VACCINE [Concomitant]
     Active Substance: ELASOMERAN
     Indication: COVID-19 immunisation
     Dosage: SECOND DOSE?ONE IN ONCE
     Route: 030
     Dates: start: 20210426, end: 20210426
  4. MODERNA COVID-19 VACCINE [Concomitant]
     Active Substance: ELASOMERAN
     Indication: COVID-19 immunisation
     Dosage: THIRD DOSE?ONE IN ONCE
     Route: 030
     Dates: start: 20211028, end: 20211028

REACTIONS (35)
  - Dysarthria [Not Recovered/Not Resolved]
  - Skin ulcer [Unknown]
  - Bone pain [Not Recovered/Not Resolved]
  - Skin swelling [Unknown]
  - Poor quality sleep [Unknown]
  - Photosensitivity reaction [Unknown]
  - Asthenia [Not Recovered/Not Resolved]
  - Gout [Unknown]
  - Fatigue [Not Recovered/Not Resolved]
  - Blood pressure abnormal [Unknown]
  - Slow speech [Unknown]
  - Memory impairment [Unknown]
  - Dyspnoea [Not Recovered/Not Resolved]
  - Sunburn [Unknown]
  - Peripheral swelling [Not Recovered/Not Resolved]
  - Limb injury [Unknown]
  - Pain in extremity [Not Recovered/Not Resolved]
  - Blister [Recovering/Resolving]
  - Bleeding time prolonged [Unknown]
  - Rash vesicular [Not Recovered/Not Resolved]
  - Nervous system disorder [Unknown]
  - Wound haemorrhage [Unknown]
  - Dizziness [Not Recovered/Not Resolved]
  - Palpitations [Recovered/Resolved]
  - Rash [Not Recovered/Not Resolved]
  - White blood cell count abnormal [Unknown]
  - Malaise [Unknown]
  - Drug ineffective [Unknown]
  - Stomatitis [Recovering/Resolving]
  - Pain [Unknown]
  - Swelling [Not Recovered/Not Resolved]
  - Urticaria [Recovering/Resolving]
  - Haemorrhage [Unknown]
  - Oral mucosal blistering [Not Recovered/Not Resolved]
  - Mouth ulceration [Not Recovered/Not Resolved]

NARRATIVE: CASE EVENT DATE: 20220923
